FAERS Safety Report 24286114 (Version 2)
Quarter: 2024Q3

REPORT INFORMATION
  Report Type: Spontaneous
  Country: DE (occurrence: DE)
  Receive Date: 20240905
  Receipt Date: 20240912
  Transmission Date: 20241016
  Serious: Yes (Other)
  Sender: MYLAN
  Company Number: None

PATIENT
  Age: 35 Year
  Sex: Male
  Weight: 66 kg

DRUGS (3)
  1. SERTRALINE [Suspect]
     Active Substance: SERTRALINE HYDROCHLORIDE
     Indication: Stress management
     Dosage: 50 MILLIGRAM, QD (50 MG)
     Route: 048
     Dates: start: 20240515
  2. SERTRALINE [Suspect]
     Active Substance: SERTRALINE HYDROCHLORIDE
     Dosage: 25 MILLIGRAM, QD
     Route: 048
  3. SERTRALINE [Suspect]
     Active Substance: SERTRALINE HYDROCHLORIDE
     Dosage: 12.5 MILLIGRAM, QD (1/4 TABLET)
     Route: 048
     Dates: end: 20240531

REACTIONS (18)
  - Suicidal ideation [Recovered/Resolved with Sequelae]
  - Erectile dysfunction [Recovered/Resolved with Sequelae]
  - Loss of libido [Recovered/Resolved with Sequelae]
  - Penile vascular disorder [Recovered/Resolved with Sequelae]
  - Penile pain [Not Recovered/Not Resolved]
  - Penile size reduced [Recovered/Resolved with Sequelae]
  - Genital hypoaesthesia [Recovered/Resolved with Sequelae]
  - Impaired quality of life [Unknown]
  - Sleep disorder [Unknown]
  - Testicular pain [Unknown]
  - Pelvic pain [Unknown]
  - Hypoaesthesia [Recovered/Resolved with Sequelae]
  - Euphoric mood [Unknown]
  - Fatigue [Unknown]
  - Dry mouth [Unknown]
  - Sexual dysfunction [Not Recovered/Not Resolved]
  - Dyspepsia [Unknown]
  - Nausea [Unknown]

NARRATIVE: CASE EVENT DATE: 20240515
